FAERS Safety Report 7498338-7 (Version None)
Quarter: 2011Q2

REPORT INFORMATION
  Report Type: 
  Country: None (occurrence: None)
  Receive Date: 20110524
  Receipt Date: 20090930
  Transmission Date: 20111010
  Serious: Yes (Other)
  Sender: FDA-Public Use
  Company Number: US-BAYER-2011-008080

PATIENT
  Sex: Male
  Weight: 80 kg

DRUGS (34)
  1. SODIUM BICARBONATE [Concomitant]
     Dosage: 50 PUMP PRIME
     Route: 042
     Dates: start: 20041014
  2. NITROGLYCERIN [Concomitant]
     Dosage: 1 INCH Q6HR
     Route: 061
     Dates: start: 20041011
  3. LOPRESSOR [Concomitant]
     Dosage: 25 MG, BID
     Route: 048
     Dates: start: 20041008
  4. REGLAN [Concomitant]
     Dosage: 10/50 MG
     Route: 042
     Dates: start: 20041014, end: 20041014
  5. ANCEF [Concomitant]
     Dosage: 2 GMS
     Route: 042
     Dates: start: 20041014, end: 20041014
  6. CALCIUM CHLORIDE [Concomitant]
     Dosage: UNK
     Route: 042
     Dates: start: 20041014, end: 20041014
  7. APROTININ [Concomitant]
     Dosage: 200 CC, UNK
     Route: 042
     Dates: start: 20041014, end: 20041014
  8. PROTONIX [Concomitant]
     Dosage: 40 MG, QD
     Route: 048
     Dates: start: 20041008
  9. ALBUMIN (HUMAN) [Concomitant]
     Dosage: 300CC
  10. TEMAZ [Concomitant]
     Indication: INSOMNIA
     Dosage: 15 MG, QD
     Route: 048
  11. LEVOPHED [Concomitant]
     Dosage: 20 (?)
     Route: 042
     Dates: start: 20041014, end: 20041014
  12. PROCARDIA XL [Concomitant]
     Dosage: 30 MG, QD
     Route: 048
  13. HEPARIN [Concomitant]
     Dosage: 1000 U PUMP PRIME
     Route: 042
     Dates: start: 20041014, end: 20041014
  14. LOVASTIN [Concomitant]
     Dosage: 40 MG, HS
     Route: 048
     Dates: start: 20041008
  15. FENTANYL [Concomitant]
     Dosage: 27
     Route: 042
     Dates: start: 20041014, end: 20041014
  16. HYDRALAZINE HCL [Concomitant]
     Dosage: 10 MG, Q6HR
     Route: 048
     Dates: start: 20041012
  17. ASPIRIN [Concomitant]
     Dosage: 81 MG, QD
     Route: 048
  18. ZANTAC [Concomitant]
     Dosage: 10/50 MG
     Route: 042
     Dates: start: 20041014, end: 20041014
  19. CAPTOPRIL [Concomitant]
     Dosage: 6.25 MG, TID
     Route: 048
     Dates: start: 20041008, end: 20041012
  20. VERPAMIL HCL [Concomitant]
     Dosage: 240 MG, QD
     Route: 048
  21. NEXIUM [Concomitant]
     Dosage: 40 MG, UNK
     Route: 045
     Dates: start: 20041014, end: 20041014
  22. MYLANTA AR [Concomitant]
     Indication: DYSPEPSIA
     Dosage: 15 MG, PRN
     Route: 048
  23. INSULIN [Concomitant]
     Dosage: UNK
     Route: 042
     Dates: start: 20041014
  24. LASIX [Concomitant]
     Dosage: 20 MG, UNK
     Route: 042
     Dates: start: 20041014, end: 20041014
  25. MANNITOL [Concomitant]
     Dosage: 150CC PUMP PRIME
     Route: 042
     Dates: start: 20041014
  26. TRASYLOL [Suspect]
     Indication: CORONARY ARTERY BYPASS
     Dosage: LOADING DOSE AMOUNT 200CC
     Route: 042
     Dates: start: 20041014, end: 20041014
  27. NEXIUM [Concomitant]
     Dosage: 40 MG, QD
     Route: 048
  28. HEPARIN [Concomitant]
     Dosage: 5000 UNITS EVERY 12 HOURS
     Route: 058
  29. MAGNESIUM SULFATE [Concomitant]
     Dosage: 15 MG, UNK
     Route: 042
     Dates: start: 20041014, end: 20041014
  30. VERSED [Concomitant]
     Dosage: 2 MG, UNK
     Route: 042
     Dates: start: 20041014, end: 20041014
  31. PROPOFOL [Concomitant]
     Dosage: 100 UNK, UNK
     Route: 042
     Dates: start: 20041014, end: 20041014
  32. PROTAMINE SULFATE [Concomitant]
     Dosage: 40 MG (?)
     Route: 042
     Dates: start: 20041014, end: 20041014
  33. LIDOCAINE [Concomitant]
     Dosage: UNK
     Route: 042
     Dates: start: 20041014, end: 20041014
  34. MORPHINE SULFATE [Concomitant]
     Dosage: 15 MG, UNK
     Route: 042
     Dates: start: 20041014

REACTIONS (13)
  - DEPRESSION [None]
  - NERVOUSNESS [None]
  - EMOTIONAL DISTRESS [None]
  - RENAL INJURY [None]
  - UNEVALUABLE EVENT [None]
  - DISABILITY [None]
  - MULTI-ORGAN FAILURE [None]
  - FEAR OF DEATH [None]
  - RENAL FAILURE [None]
  - PAIN [None]
  - ANXIETY [None]
  - FEAR [None]
  - INJURY [None]
